FAERS Safety Report 18566774 (Version 1)
Quarter: 2020Q4

REPORT INFORMATION
  Report Type: Report from Study
  Country: US (occurrence: US)
  Receive Date: 20201201
  Receipt Date: 20201201
  Transmission Date: 20210114
  Serious: No
  Sender: FDA-Public Use
  Company Number: US-DOVA PHARMACEUTICALS INC.-DOV-000632

PATIENT
  Sex: Male

DRUGS (1)
  1. DOPTELET [Suspect]
     Active Substance: AVATROMBOPAG MALEATE
     Indication: HEPATITIS C
     Dosage: 20 MG, QOD EVERY 48H
     Route: 048

REACTIONS (2)
  - Blood count abnormal [Unknown]
  - Product use in unapproved indication [Unknown]
